FAERS Safety Report 4376850-7 (Version None)
Quarter: 2004Q2

REPORT INFORMATION
  Report Type: 
  Country: None (occurrence: None)
  Receive Date: 20040609
  Receipt Date: 20040303
  Transmission Date: 20050107
  Serious: Yes (Hospitalization)
  Sender: FDA-Public Use
  Company Number: US-SHR-04-021037

PATIENT
  Age: 23 Year
  Sex: Female
  Weight: 127 kg

DRUGS (1)
  1. YASMIN [Suspect]
     Indication: MENSTRUATION IRREGULAR
     Dosage: 1 TAB(S), 1X/DAY; ORAL
     Route: 048
     Dates: start: 20020101, end: 20040130

REACTIONS (2)
  - DEEP VEIN THROMBOSIS [None]
  - PULMONARY MICROEMBOLI [None]
